FAERS Safety Report 7415421-2 (Version None)
Quarter: 2011Q2

REPORT INFORMATION
  Report Type: 
  Country: None (occurrence: None)
  Receive Date: 20110414
  Receipt Date: 20110411
  Transmission Date: 20111010
  Serious: Yes (Death, Other)
  Sender: FDA-Public Use
  Company Number: DE-SANOFI-AVENTIS-2011SA021817

PATIENT
  Age: 48 Year
  Sex: Male
  Weight: 74.1 kg

DRUGS (8)
  1. CISPLATIN [Suspect]
     Route: 041
     Dates: start: 20110204, end: 20110204
  2. FLUOROURACIL [Suspect]
     Route: 041
     Dates: start: 20110204, end: 20110204
  3. DOCETAXEL [Suspect]
     Route: 041
     Dates: start: 20110325, end: 20110325
  4. CETUXIMAB [Suspect]
     Route: 041
     Dates: start: 20110204, end: 20110204
  5. DOCETAXEL [Suspect]
     Route: 041
     Dates: start: 20110204, end: 20110204
  6. CISPLATIN [Suspect]
     Route: 041
     Dates: start: 20110325, end: 20110325
  7. CETUXIMAB [Suspect]
     Route: 041
     Dates: start: 20110325, end: 20110325
  8. FLUOROURACIL [Suspect]
     Route: 041
     Dates: start: 20110325, end: 20110325

REACTIONS (2)
  - DEATH [None]
  - SEPSIS [None]
